FAERS Safety Report 19848921 (Version 2)
Quarter: 2021Q3

REPORT INFORMATION
  Report Type: Report from Study
  Country: MX (occurrence: MX)
  Receive Date: 20210918
  Receipt Date: 20210923
  Transmission Date: 20211014
  Serious: Yes (Hospitalization, Other)
  Sender: FDA-Public Use
  Company Number: MX-UCBSA-2021039893

PATIENT
  Sex: Female
  Weight: 76 kg

DRUGS (16)
  1. ROTIGOTINE [Suspect]
     Active Substance: ROTIGOTINE
     Dosage: 8 MG PATCH EVERY 40 HOURS
     Route: 062
     Dates: start: 2021
  2. PANTOPRAZOLE [Concomitant]
     Active Substance: PANTOPRAZOLE
     Indication: GASTRIC DISORDER
  3. DIAZEPAM. [Concomitant]
     Active Substance: DIAZEPAM
     Indication: SLEEP DISORDER
  4. ROTIGOTINE [Suspect]
     Active Substance: ROTIGOTINE
     Dosage: 1.5 PATCHES OF 4 MG, THAT IS, 6 MG EVERY 40 HOURS FOR 15 DAYS
     Route: 062
     Dates: start: 2021, end: 2021
  5. FOSFOCIL [FOSFOMYCIN SODIUM] [Concomitant]
     Indication: URINARY TRACT INFECTION
  6. OLANZAPINE. [Concomitant]
     Active Substance: OLANZAPINE
     Indication: HALLUCINATION
  7. SENOSIDE [Concomitant]
     Indication: DYSPEPSIA
     Dosage: 2 DOSAGE FORM, 2X/DAY (BID)
     Route: 048
  8. ROTIGOTINE [Suspect]
     Active Substance: ROTIGOTINE
     Dosage: 8MG WITH 4MG HALF PATCH THAT IS TO SAY 10MG
     Route: 062
     Dates: start: 2021
  9. LEVODOPA/CARBIDOPA [Concomitant]
     Active Substance: CARBIDOPA\LEVODOPA
     Indication: PARKINSONISM
     Dosage: 1 TABLET EVERY 3 HRS
     Route: 048
     Dates: start: 2017
  10. FLUNARIZINE [Concomitant]
     Active Substance: FLUNARIZINE
     Indication: ANTICOAGULANT THERAPY
  11. QUETIAPINE. [Concomitant]
     Active Substance: QUETIAPINE
     Indication: SLEEP DISORDER
  12. ROTIGOTINE [Suspect]
     Active Substance: ROTIGOTINE
     Indication: PARKINSON^S DISEASE
     Dosage: HALF PATCH OF 4 MG EVERY 40 HOURS FOR A WEEK
     Route: 062
     Dates: start: 2021, end: 2021
  13. NIAR [Concomitant]
     Indication: PARKINSON^S DISEASE
     Dosage: 1 DOSAGE FORM, 2X/DAY (BID)
     Route: 048
  14. ROTIGOTINE [Suspect]
     Active Substance: ROTIGOTINE
     Dosage: 4 MILLIGRAM EVERY 40 HOURS, FOR 15 DAYS
     Route: 062
     Dates: start: 202105, end: 2021
  15. CHLORTHALIDONE. [Concomitant]
     Active Substance: CHLORTHALIDONE
     Indication: DIURETIC THERAPY
     Dosage: 1 DOSAGE FORM, ONCE DAILY (QD)
     Route: 048
  16. PRAMIPEXOLE. [Concomitant]
     Active Substance: PRAMIPEXOLE
     Indication: PARKINSON^S DISEASE
     Dosage: 2TAB AM, 2AFTERNOON AND 1 PM
     Route: 048

REACTIONS (10)
  - Dysphagia [Not Recovered/Not Resolved]
  - Hallucination [Not Recovered/Not Resolved]
  - Off label use [Unknown]
  - Device adhesion issue [Unknown]
  - Urinary tract infection [Recovered/Resolved]
  - Dyspepsia [Not Recovered/Not Resolved]
  - Gastritis [Not Recovered/Not Resolved]
  - Drug ineffective [Unknown]
  - Renal disorder [Not Recovered/Not Resolved]
  - Insomnia [Recovered/Resolved]

NARRATIVE: CASE EVENT DATE: 2021
